FAERS Safety Report 9296739 (Version 4)
Quarter: 2014Q1

REPORT INFORMATION
  Report Type: Spontaneous
  Country: US (occurrence: US)
  Receive Date: 20130517
  Receipt Date: 20140307
  Transmission Date: 20141002
  Serious: Yes (Hospitalization, Other)
  Sender: FDA-Public Use
  Company Number: US-009507513-1305USA010616

PATIENT
  Sex: Male
  Weight: 86.71 kg

DRUGS (4)
  1. PROPECIA [Suspect]
     Indication: ANDROGENETIC ALOPECIA
     Dosage: 1 MG, QD
     Route: 048
     Dates: start: 20100504
  2. ORACEA [Concomitant]
     Indication: ROSACEA
     Dosage: 40 MG, QD
     Dates: start: 2008, end: 201207
  3. SERTRALINE HYDROCHLORIDE [Concomitant]
     Indication: ANXIETY
     Dosage: 25 MG, 0.5-1 TAB QD
     Dates: start: 200812
  4. SERTRALINE HYDROCHLORIDE [Concomitant]
     Indication: PANIC ATTACK

REACTIONS (20)
  - Pulmonary embolism [Unknown]
  - Deep vein thrombosis [Unknown]
  - Weight increased [Unknown]
  - Adverse event [Unknown]
  - Muscle spasms [Unknown]
  - Hypothyroidism [Unknown]
  - Anxiety [Unknown]
  - Sleep apnoea syndrome [Unknown]
  - Blood testosterone decreased [Unknown]
  - Hand fracture [Recovered/Resolved]
  - Nasal operation [Unknown]
  - Acne [Unknown]
  - Herpes simplex [Unknown]
  - Depression [Not Recovered/Not Resolved]
  - Erectile dysfunction [Not Recovered/Not Resolved]
  - Sexual dysfunction [Not Recovered/Not Resolved]
  - Gynaecomastia [Not Recovered/Not Resolved]
  - Libido decreased [Unknown]
  - Semen volume decreased [Unknown]
  - Testicular pain [Unknown]
